FAERS Safety Report 7389990-5 (Version None)
Quarter: 2011Q1

REPORT INFORMATION
  Report Type: 
  Country: None (occurrence: None)
  Receive Date: 20110324
  Receipt Date: 20110314
  Transmission Date: 20110831
  Serious: Yes (Disabling, Other)
  Sender: FDA-Public Use
  Company Number: DSA_45180_2011

PATIENT
  Sex: Female

DRUGS (1)
  1. CARDIZEM [Suspect]
     Indication: PRODUCT USED FOR UNKNOWN INDICATION
     Dosage: (DF)
     Dates: start: 20100101, end: 20100101

REACTIONS (10)
  - HYPOTENSION [None]
  - IMPAIRED WORK ABILITY [None]
  - DYSPEPSIA [None]
  - ALOPECIA [None]
  - CONSTIPATION [None]
  - MUSCULAR WEAKNESS [None]
  - ARTHRALGIA [None]
  - FIBROMYALGIA [None]
  - VISUAL IMPAIRMENT [None]
  - CONDITION AGGRAVATED [None]
